FAERS Safety Report 6457072-2 (Version None)
Quarter: 2009Q4

REPORT INFORMATION
  Report Type: 
  Country: None (occurrence: None)
  Receive Date: 20091120
  Receipt Date: 20091110
  Transmission Date: 20100525
  Serious: Yes (Other)
  Sender: FDA-Public Use
  Company Number: 2009AP003708

PATIENT
  Age: 67 Year
  Sex: Female

DRUGS (5)
  1. SOTALOL HCL [Suspect]
     Indication: ARRHYTHMIA
     Dosage: 120 MG;BID;PO
     Route: 048
  2. ENZYME PREPARATIONS [Suspect]
  3. FUROSEMIDE [Concomitant]
  4. POTASSIUM [Concomitant]
  5. FISH OIL [Concomitant]

REACTIONS (5)
  - ATRIAL FIBRILLATION [None]
  - CARDIAC FLUTTER [None]
  - DRUG INEFFECTIVE [None]
  - DRUG INTERACTION [None]
  - HEART RATE IRREGULAR [None]
